FAERS Safety Report 10064953 (Version 2)
Quarter: 2014Q2

REPORT INFORMATION
  Report Type: Report from Study
  Country: CA (occurrence: CA)
  Receive Date: 20140408
  Receipt Date: 20140508
  Transmission Date: 20141212
  Serious: Yes (Hospitalization, Other)
  Sender: FDA-Public Use
  Company Number: CA-ABBVIE-14P-028-1220426-00

PATIENT
  Sex: Female

DRUGS (3)
  1. HUMIRA [Suspect]
     Indication: PSORIASIS
     Dates: start: 20110717, end: 201402
  2. HUMIRA [Suspect]
     Route: 058
     Dates: start: 201402, end: 201403
  3. HUMIRA [Suspect]
     Route: 058
     Dates: start: 201403

REACTIONS (2)
  - Colitis [Unknown]
  - Psoriasis [Unknown]
